FAERS Safety Report 14034929 (Version 2)
Quarter: 2017Q4

REPORT INFORMATION
  Report Type: Spontaneous
  Country: JP (occurrence: JP)
  Receive Date: 20171003
  Receipt Date: 20171003
  Transmission Date: 20180321
  Serious: Yes (Other)
  Sender: FDA-Public Use
  Company Number: GXJP2017JP001523

PATIENT
  Age: 37 Year
  Sex: Male

DRUGS (3)
  1. RIFAMPICIN CAPSULES [Interacting]
     Active Substance: RIFAMPIN
     Indication: ANTIBIOTIC PROPHYLAXIS
     Route: 048
  2. PREDNISOLONE. [Interacting]
     Active Substance: PREDNISOLONE
     Indication: PSORIATIC ARTHROPATHY
     Route: 048
  3. NEORAL [Suspect]
     Active Substance: CYCLOSPORINE
     Indication: PSORIATIC ARTHROPATHY
     Route: 048

REACTIONS (5)
  - Drug interaction [Recovered/Resolved]
  - Psoriatic arthropathy [Recovered/Resolved]
  - Concomitant disease progression [Unknown]
  - Arthralgia [Recovered/Resolved]
  - Rash [Recovered/Resolved]
